FAERS Safety Report 6180597-4 (Version None)
Quarter: 2009Q2

REPORT INFORMATION
  Report Type: 
  Country: None (occurrence: None)
  Receive Date: 20090506
  Receipt Date: 20090427
  Transmission Date: 20091009
  Serious: Yes (Other)
  Sender: FDA-Public Use
  Company Number: US-ASTRAZENECA-2009AP02957

PATIENT
  Sex: Male
  Weight: 108.6 kg

DRUGS (5)
  1. ZESTRIL [Suspect]
     Indication: HYPERTENSION
  2. PLENDIL [Suspect]
     Indication: HYPERTENSION
  3. NORVASC [Suspect]
     Indication: HYPERTENSION
  4. NORVASC [Suspect]
  5. MULTI-VITAMIN [Concomitant]

REACTIONS (3)
  - DIZZINESS [None]
  - HEADACHE [None]
  - HYPERTENSION [None]
